FAERS Safety Report 18170370 (Version 1)
Quarter: 2020Q3

REPORT INFORMATION
  Report Type: Spontaneous
  Country: CA (occurrence: CA)
  Receive Date: 20200819
  Receipt Date: 20200819
  Transmission Date: 20201103
  Serious: Yes (Other)
  Sender: FDA-Public Use
  Company Number: CA-FRESENIUS KABI-FK202008422

PATIENT
  Sex: Female

DRUGS (2)
  1. MIDAZOLAM (MANUFACTURER UNKNOWN) [Suspect]
     Active Substance: MIDAZOLAM HYDROCHLORIDE
     Indication: SEDATIVE THERAPY
  2. FENTANYL. [Suspect]
     Active Substance: FENTANYL
     Indication: SEDATIVE THERAPY
     Route: 065

REACTIONS (5)
  - Condition aggravated [Unknown]
  - Resuscitation [Unknown]
  - Odynophagia [Unknown]
  - Abdominal pain upper [Unknown]
  - Oxygen saturation immeasurable [Unknown]
